FAERS Safety Report 11499953 (Version 4)
Quarter: 2015Q4

REPORT INFORMATION
  Report Type: Spontaneous
  Country: TR (occurrence: TR)
  Receive Date: 20150910
  Receipt Date: 20151204
  Transmission Date: 20160304
  Serious: Yes (Hospitalization)
  Sender: FDA-Public Use
  Company Number: TR-FTV20150617-01

PATIENT
  Age: 18 Year
  Sex: Male
  Weight: 102.5 kg

DRUGS (3)
  1. BENICAL COLD [Suspect]
     Active Substance: ACETAMINOPHEN\DEXTROMETHORPHAN\PSEUDOEPHEDRINE HYDROCHLORIDE
     Route: 048
     Dates: start: 20150526, end: 20150602
  2. FACTIVE [Suspect]
     Active Substance: GEMIFLOXACIN MESYLATE
     Indication: PNEUMONIA
     Route: 048
     Dates: start: 20150526, end: 20150602
  3. PEREBRON SYRUP [Suspect]
     Active Substance: OXOLAMINE
     Route: 048
     Dates: start: 20150526, end: 20150602

REACTIONS (3)
  - Rash maculo-papular [Recovering/Resolving]
  - Drug eruption [Recovering/Resolving]
  - Petechiae [Recovering/Resolving]

NARRATIVE: CASE EVENT DATE: 20150602
